FAERS Safety Report 22388946 (Version 1)
Quarter: 2023Q2

REPORT INFORMATION
  Report Type: Spontaneous
  Country: BR (occurrence: BR)
  Receive Date: 20230531
  Receipt Date: 20230531
  Transmission Date: 20230722
  Serious: Yes (Other)
  Sender: FDA-Public Use
  Company Number: BR-BAYER-2023A070868

PATIENT
  Sex: Female

DRUGS (1)
  1. MIRENA [Suspect]
     Active Substance: LEVONORGESTREL
     Dosage: 20?G/DAY
     Route: 015

REACTIONS (8)
  - Depression suicidal [Recovered/Resolved]
  - Weight increased [None]
  - Loss of libido [None]
  - Breast pain [None]
  - Abdominal pain lower [None]
  - Premenstrual syndrome [None]
  - Amenorrhoea [Not Recovered/Not Resolved]
  - Headache [Recovered/Resolved]
